FAERS Safety Report 13821425 (Version 1)
Quarter: 2017Q3

REPORT INFORMATION
  Report Type: Spontaneous
  Country: CO (occurrence: CO)
  Receive Date: 20170801
  Receipt Date: 20170801
  Transmission Date: 20171127
  Serious: Yes (Disabling)
  Sender: FDA-Public Use
  Company Number: CO-HIKMA PHARMACEUTICALS CO. LTD-2017CO009691

PATIENT

DRUGS (1)
  1. REMSIMA [Suspect]
     Active Substance: INFLIXIMAB
     Indication: RHEUMATOID ARTHRITIS
     Dosage: 200 MG, 8WEEKS
     Route: 042
     Dates: start: 20170418, end: 20170418

REACTIONS (1)
  - Treatment failure [Recovering/Resolving]

NARRATIVE: CASE EVENT DATE: 20170608
